FAERS Safety Report 9961683 (Version 1)
Quarter: 2014Q1

REPORT INFORMATION
  Report Type: Report from Study
  Country: US (occurrence: US)
  Receive Date: 20140305
  Receipt Date: 20140305
  Transmission Date: 20141002
  Serious: No
  Sender: FDA-Public Use
  Company Number: US-ABBVIE-13P-163-1110975-00

PATIENT
  Age: 24 Year
  Sex: Female

DRUGS (3)
  1. HUMIRA [Suspect]
     Indication: CROHN^S DISEASE
     Dates: start: 20130527, end: 20130527
  2. HUMIRA [Suspect]
     Dates: start: 20130610, end: 20130610
  3. HUMIRA [Suspect]
     Dates: start: 20130624

REACTIONS (2)
  - Anxiety [Recovered/Resolved]
  - Incorrect route of drug administration [Unknown]
